FAERS Safety Report 5888993-7 (Version None)
Quarter: 2008Q3

REPORT INFORMATION
  Report Type: 
  Country: None (occurrence: None)
  Receive Date: 20080919
  Receipt Date: 20080603
  Transmission Date: 20090109
  Serious: No
  Sender: FDA-Public Use
  Company Number: US-BAYER-200824705NA

PATIENT
  Age: 62 Year
  Sex: Male

DRUGS (1)
  1. CIPRO [Suspect]
     Indication: PROSTATITIS
     Route: 048
     Dates: start: 20080501, end: 20080501

REACTIONS (1)
  - TENDONITIS [None]
